FAERS Safety Report 14953623 (Version 1)
Quarter: 2018Q2

REPORT INFORMATION
  Report Type: Spontaneous
  Country: US (occurrence: US)
  Receive Date: 20180509
  Receipt Date: 20180509
  Transmission Date: 20180711
  Serious: Yes (Other)
  Sender: FDA-Public Use
  Company Number: None

PATIENT
  Age: 43 Year
  Sex: Female
  Weight: 60.3 kg

DRUGS (8)
  1. BIO IDENTICAL HRT BI-EST-TEST PROG TROCHE [Concomitant]
  2. VITAMIN D-2 [Concomitant]
  3. PROGESTERONE. [Concomitant]
     Active Substance: PROGESTERONE
  4. MAXALT [Concomitant]
     Active Substance: RIZATRIPTAN BENZOATE
  5. TYLENOL PM [Concomitant]
     Active Substance: ACETAMINOPHEN\DIPHENHYDRAMINE
  6. DEXTROAMPHET SACCHARAT, AMPHET ASPARTATE, DEXTROAMPHET SULFATE AND AMPHET SULFAT [Suspect]
     Active Substance: AMPHETAMINE ASPARTATE\AMPHETAMINE SULFATE\DEXTROAMPHETAMINE SACCHARATE\DEXTROAMPHETAMINE SULFATE
     Indication: ATTENTION DEFICIT/HYPERACTIVITY DISORDER
     Dosage: ?          QUANTITY:2.25 TABLET(S);?
     Route: 048
     Dates: start: 20180404, end: 20180509
  7. ADVIL [Concomitant]
     Active Substance: IBUPROFEN
  8. CLONAZEPAM. [Concomitant]
     Active Substance: CLONAZEPAM

REACTIONS (20)
  - Chest pain [None]
  - Anxiety [None]
  - Nervousness [None]
  - Muscle tightness [None]
  - Fatigue [None]
  - Somnolence [None]
  - Disturbance in attention [None]
  - Abdominal discomfort [None]
  - Peripheral coldness [None]
  - Urticaria [None]
  - Migraine [None]
  - Headache [None]
  - Depressed level of consciousness [None]
  - Agitation [None]
  - Bruxism [None]
  - Arthralgia [None]
  - Memory impairment [None]
  - Pruritus [None]
  - Amnesia [None]
  - Chest discomfort [None]

NARRATIVE: CASE EVENT DATE: 20180404
